FAERS Safety Report 13562329 (Version 5)
Quarter: 2017Q4

REPORT INFORMATION
  Report Type: Spontaneous
  Country: US (occurrence: US)
  Receive Date: 20170519
  Receipt Date: 20171116
  Transmission Date: 20180320
  Serious: Yes (Other)
  Sender: FDA-Public Use
  Company Number: PHEH2017US015018

PATIENT
  Sex: Female

DRUGS (1)
  1. ONDANSETRON HYDROCHLORIDE. [Suspect]
     Active Substance: ONDANSETRON HYDROCHLORIDE
     Indication: VOMITING IN PREGNANCY
     Dosage: 8 MG, TID
     Route: 048
     Dates: start: 20130409, end: 20130826

REACTIONS (9)
  - Perineal infection [Unknown]
  - Maternal exposure during pregnancy [Unknown]
  - Injury [Unknown]
  - Anxiety [Unknown]
  - Product use in unapproved indication [Unknown]
  - Urinary tract infection [Unknown]
  - Pain [Unknown]
  - Abdominal distension [Unknown]
  - Emotional distress [Unknown]
